FAERS Safety Report 8295746-1 (Version None)
Quarter: 2012Q2

REPORT INFORMATION
  Report Type: 
  Country: None (occurrence: None)
  Receive Date: 20120418
  Receipt Date: 20120412
  Transmission Date: 20120825
  Serious: No
  Sender: FDA-Public Use
  Company Number: US-PFIZER INC-2012092311

PATIENT
  Sex: Female
  Weight: 72.562 kg

DRUGS (5)
  1. FEMARA [Concomitant]
     Indication: BREAST CANCER
     Dosage: UNK
  2. TAPAZOLE [Suspect]
     Indication: BASEDOW'S DISEASE
     Dosage: UNK
     Dates: start: 20000101, end: 20060101
  3. LEXAPRO [Concomitant]
     Dosage: UNK
  4. ANASTROZOLE [Concomitant]
     Indication: BREAST CANCER
     Dosage: UNK
  5. TAPAZOLE [Suspect]
     Dosage: UNK
     Dates: start: 20100701, end: 20120201

REACTIONS (2)
  - MICTURITION DISORDER [None]
  - ABDOMINAL PAIN UPPER [None]
